FAERS Safety Report 16052189 (Version 1)
Quarter: 2019Q1

REPORT INFORMATION
  Report Type: Other
  Country: IT (occurrence: IT)
  Receive Date: 20190308
  Receipt Date: 20190308
  Transmission Date: 20190418
  Serious: Yes (Death, Life-Threatening, Hospitalization)
  Sender: FDA-Public Use
  Company Number: IT-NOSTRUM LABORATORIES, INC.-2063718

PATIENT
  Age: 81 Year
  Sex: Male

DRUGS (1)
  1. METFORMIN HYDROCHLORIDE EXTENDED-RELEASE [Suspect]
     Active Substance: METFORMIN HYDROCHLORIDE
     Indication: TYPE 2 DIABETES MELLITUS
     Route: 048

REACTIONS (5)
  - Hypotension [Fatal]
  - Lactic acidosis [Fatal]
  - Cardiac arrest [Fatal]
  - Acute kidney injury [Fatal]
  - Hypovolaemic shock [Fatal]
